FAERS Safety Report 25520608 (Version 1)
Quarter: 2025Q3

REPORT INFORMATION
  Report Type: Spontaneous
  Country: JP (occurrence: JP)
  Receive Date: 20250705
  Receipt Date: 20250705
  Transmission Date: 20251020
  Serious: Yes (Other)
  Sender: VKT PHARMA PRIVATE LIMITED
  Company Number: JP-VKT-000662

PATIENT
  Age: 39 Year
  Sex: Female

DRUGS (3)
  1. LACOSAMIDE [Concomitant]
     Active Substance: LACOSAMIDE
     Indication: Seizure
     Route: 065
  2. LEVETIRACETAM [Suspect]
     Active Substance: LEVETIRACETAM
     Indication: Seizure
     Route: 065
     Dates: start: 201808
  3. LEVETIRACETAM [Suspect]
     Active Substance: LEVETIRACETAM
     Indication: Seizure
     Route: 065

REACTIONS (5)
  - Seizure [Recovered/Resolved]
  - Paradoxical drug reaction [Recovered/Resolved]
  - Anticonvulsant drug level increased [Recovered/Resolved]
  - Focal dyscognitive seizures [Recovered/Resolved]
  - Maternal exposure during pregnancy [Unknown]
